FAERS Safety Report 19413330 (Version 1)
Quarter: 2021Q2

REPORT INFORMATION
  Report Type: Report from Study
  Country: DE (occurrence: DE)
  Receive Date: 20210614
  Receipt Date: 20210614
  Transmission Date: 20210717
  Serious: Yes (Other)
  Sender: FDA-Public Use
  Company Number: DE-TAKEDA-2021TUS035921

PATIENT
  Age: 7 Year
  Sex: Male

DRUGS (17)
  1. ADVATE [Suspect]
     Active Substance: ANTIHEMOPHILIC FACTOR, HUMAN RECOMBINANT
     Dosage: 3 X 1000IE AND 1X 750IE /WEEK
     Route: 065
     Dates: start: 20140811, end: 20201029
  2. ADVATE [Suspect]
     Active Substance: ANTIHEMOPHILIC FACTOR, HUMAN RECOMBINANT
     Dosage: 3 X 1000IE AND 1X 750IE /WEEK
     Route: 065
     Dates: start: 20140811, end: 20201107
  3. AMOXICILLIN. [Concomitant]
     Active Substance: AMOXICILLIN
     Indication: MIDDLE EAR INFLAMMATION
     Dosage: 250 MILLIGRAM
     Route: 048
     Dates: start: 20151230, end: 20160105
  4. ADVATE [Suspect]
     Active Substance: ANTIHEMOPHILIC FACTOR, HUMAN RECOMBINANT
     Indication: PROPHYLAXIS
     Dosage: 3 X 1000IE AND 1X 750IE /WEEK
     Route: 065
     Dates: start: 20140811, end: 20200907
  5. ADVATE [Suspect]
     Active Substance: ANTIHEMOPHILIC FACTOR, HUMAN RECOMBINANT
     Indication: PROPHYLAXIS
     Dosage: 3 X 1000IE AND 1X 750IE /WEEK
     Route: 065
     Dates: start: 20140811, end: 20200907
  6. ADVATE [Suspect]
     Active Substance: ANTIHEMOPHILIC FACTOR, HUMAN RECOMBINANT
     Dosage: 3 X 1000IE AND 1X 750IE PER WEEK
     Route: 065
     Dates: start: 20140811, end: 20201201
  7. ADVATE [Suspect]
     Active Substance: ANTIHEMOPHILIC FACTOR, HUMAN RECOMBINANT
     Dosage: 3 X 1000IE AND 1X 750IE /WEEK
     Route: 065
     Dates: start: 20140811, end: 20201107
  8. ADVATE [Suspect]
     Active Substance: ANTIHEMOPHILIC FACTOR, HUMAN RECOMBINANT
     Dosage: 3 X 1000IE AND 1X 750IE PER WEEK
     Route: 065
     Dates: start: 20140811, end: 20201201
  9. ADVATE [Suspect]
     Active Substance: ANTIHEMOPHILIC FACTOR, HUMAN RECOMBINANT
     Dosage: 3 X 1000IE AND 1X 750IE /WEEK
     Route: 065
     Dates: start: 20140811, end: 20201107
  10. ADVATE [Suspect]
     Active Substance: ANTIHEMOPHILIC FACTOR, HUMAN RECOMBINANT
     Dosage: 3 X 1000IE AND 1X 750IE PER WEEK
     Route: 065
     Dates: start: 20140811, end: 20201201
  11. ADVATE [Suspect]
     Active Substance: ANTIHEMOPHILIC FACTOR, HUMAN RECOMBINANT
     Dosage: 3 X 1000IE AND 1X 750IE /WEEK
     Route: 065
     Dates: start: 20140811, end: 20201015
  12. ADVATE [Suspect]
     Active Substance: ANTIHEMOPHILIC FACTOR, HUMAN RECOMBINANT
     Indication: PROPHYLAXIS
     Dosage: 3 X 1000IE AND 1X 750IE /WEEK
     Route: 065
     Dates: start: 20140811, end: 20200907
  13. ADVATE [Suspect]
     Active Substance: ANTIHEMOPHILIC FACTOR, HUMAN RECOMBINANT
     Dosage: 3 X 1000IE AND 1X 750IE /WEEK
     Route: 065
     Dates: start: 20140811, end: 20201015
  14. ADVATE [Suspect]
     Active Substance: ANTIHEMOPHILIC FACTOR, HUMAN RECOMBINANT
     Dosage: 3 X 1000IE AND 1X 750IE /WEEK
     Route: 065
     Dates: start: 20140811, end: 20201015
  15. ADVATE [Suspect]
     Active Substance: ANTIHEMOPHILIC FACTOR, HUMAN RECOMBINANT
     Dosage: 3 X 1000IE AND 1X 750IE /WEEK
     Route: 065
     Dates: start: 20140811, end: 20201029
  16. ADVATE [Suspect]
     Active Substance: ANTIHEMOPHILIC FACTOR, HUMAN RECOMBINANT
     Dosage: 3 X 1000IE AND 1X 750IE /WEEK
     Route: 065
     Dates: start: 20140811, end: 20201029
  17. PARACETAMOL [Concomitant]
     Active Substance: ACETAMINOPHEN
     Indication: SCARLET FEVER
     Dosage: UNK
     Route: 065
     Dates: start: 20180426, end: 20180507

REACTIONS (4)
  - Haemarthrosis [Recovered/Resolved]
  - Haemorrhage [Recovered/Resolved]
  - Head injury [Recovered/Resolved]
  - Face injury [Recovered/Resolved]

NARRATIVE: CASE EVENT DATE: 20200908
